FAERS Safety Report 19653963 (Version 2)
Quarter: 2021Q4

REPORT INFORMATION
  Report Type: Spontaneous
  Country: US (occurrence: US)
  Receive Date: 20210804
  Receipt Date: 20211101
  Transmission Date: 20220304
  Serious: No
  Sender: FDA-Public Use
  Company Number: US-THERATECHNOLOGIES INC.-2021-THE-TES-000202

PATIENT
  Sex: Female

DRUGS (1)
  1. EGRIFTA SV [Suspect]
     Active Substance: TESAMORELIN ACETATE
     Indication: Product used for unknown indication
     Dosage: UNK
     Route: 058
     Dates: end: 202109

REACTIONS (3)
  - Arthralgia [Unknown]
  - Cluster headache [Unknown]
  - Peripheral swelling [Unknown]
